FAERS Safety Report 10570297 (Version 2)
Quarter: 2014Q4

REPORT INFORMATION
  Report Type: Report from Study
  Country: IT (occurrence: IT)
  Receive Date: 20141107
  Receipt Date: 20141107
  Transmission Date: 20150529
  Serious: Yes (Death, Hospitalization)
  Sender: FDA-Public Use
  Company Number: IT-BAYER-2014-035636

PATIENT
  Age: 81 Year
  Sex: Female
  Weight: 58 kg

DRUGS (15)
  1. PRIMOVIST [Suspect]
     Active Substance: GADOXETATE DISODIUM
     Indication: HEPATOCELLULAR CARCINOMA
     Dosage: 7 ML/DAY
     Route: 042
     Dates: start: 20131031, end: 20131031
  2. YTTRIUM (90 Y) CHLORIDE [Suspect]
     Active Substance: YTTRIUM Y-90
     Indication: HEPATOCELLULAR CARCINOMA
     Dosage: 1.20 GBQ/DAY
     Dates: start: 20131204, end: 20131204
  3. PREDNISONE. [Concomitant]
     Active Substance: PREDNISONE
     Indication: RADIATION PNEUMONITIS
     Dosage: 50 MG/DAY
  4. SORAFENIB (RAF KINASE INHIBITOR) [Suspect]
     Active Substance: SORAFENIB
     Indication: HEPATOCELLULAR CARCINOMA
     Dosage: 800 MG/DAY
     Route: 048
     Dates: start: 20140109, end: 20140218
  5. RAMIPRIL. [Concomitant]
     Active Substance: RAMIPRIL
     Indication: HYPERTENSION
     Dosage: 10 MG/DAY
     Route: 048
     Dates: start: 1993
  6. SORAFENIB (RAF KINASE INHIBITOR) [Suspect]
     Active Substance: SORAFENIB
     Indication: HEPATOCELLULAR CARCINOMA
     Dosage: 400 MG/DAY
     Route: 048
     Dates: start: 20131208, end: 20140108
  7. SORAFENIB (RAF KINASE INHIBITOR) [Suspect]
     Active Substance: SORAFENIB
     Indication: HEPATOCELLULAR CARCINOMA
     Dosage: 400 MG/DAY
     Route: 048
     Dates: start: 20140219, end: 20140422
  8. CACIT D3 [Concomitant]
     Active Substance: CALCIUM\CHOLECALCIFEROL
     Indication: HYPOCALCAEMIA
     Dosage: 1000 MG/DAY
     Route: 048
     Dates: start: 20140319, end: 20140501
  9. PREDNISONE. [Concomitant]
     Active Substance: PREDNISONE
     Indication: RADIATION PNEUMONITIS
     Dosage: DAILY DOSE 25 MG
     Dates: start: 20140306, end: 20140501
  10. ROCALTROL [Concomitant]
     Active Substance: CALCITRIOL
     Indication: VITAMIN D DEFICIENCY
     Dosage: 0.25 MCG/DAY
     Route: 048
     Dates: start: 20140410, end: 20140501
  11. METAMIZOLE [Concomitant]
     Active Substance: METAMIZOLE
     Indication: GASTROOESOPHAGEAL REFLUX DISEASE
     Dosage: 20 ML/DAY
     Route: 048
     Dates: start: 20140219
  12. LUCEN [Concomitant]
     Active Substance: ESOMEPRAZOLE
     Indication: GASTROOESOPHAGEAL REFLUX DISEASE
     Dosage: 20 MG/DAY
     Route: 048
     Dates: start: 20140219
  13. ESOMEPRAZOLE [Concomitant]
     Active Substance: ESOMEPRAZOLE
     Indication: GASTROOESOPHAGEAL REFLUX DISEASE
     Dosage: 20 MG/DAY
     Route: 048
     Dates: start: 201403, end: 20140501
  14. BETOTAL 12 [Concomitant]
     Indication: ASTHENIA
     Dosage: 1 PILL/DAY
     Route: 048
     Dates: start: 20140219
  15. RAMIPRIL. [Concomitant]
     Active Substance: RAMIPRIL
     Indication: HYPERTENSION
     Dosage: DAILY DOSE 10 MG
     Dates: start: 20140419, end: 20140501

REACTIONS (7)
  - Hepatic failure [Not Recovered/Not Resolved]
  - Hyperbilirubinaemia [Not Recovered/Not Resolved]
  - Radiation pneumonitis [Not Recovered/Not Resolved]
  - Oedema peripheral [Not Recovered/Not Resolved]
  - Dyspnoea at rest [Not Recovered/Not Resolved]
  - Respiratory failure [Fatal]
  - Cholestasis [Not Recovered/Not Resolved]

NARRATIVE: CASE EVENT DATE: 20140301
